FAERS Safety Report 11330533 (Version 1)
Quarter: 2015Q3

REPORT INFORMATION
  Report Type: Spontaneous
  Country: US (occurrence: US)
  Receive Date: 20150803
  Receipt Date: 20150803
  Transmission Date: 20151125
  Serious: No
  Sender: FDA-Public Use
  Company Number: US-009507513-1507USA014410

PATIENT
  Age: 86 Year
  Sex: Female

DRUGS (1)
  1. TICE BCG [Suspect]
     Active Substance: BACILLUS CALMETTE-GUERIN SUBSTRAIN TICE LIVE ANTIGEN
     Indication: BLADDER CANCER
     Dosage: 6 DOSE REGIMEN
     Route: 043
     Dates: start: 2015, end: 201504

REACTIONS (2)
  - Drug dose omission [Unknown]
  - Cystitis erosive [Unknown]

NARRATIVE: CASE EVENT DATE: 20150709
